FAERS Safety Report 18583331 (Version 1)
Quarter: 2020Q4

REPORT INFORMATION
  Report Type: Spontaneous
  Country: CN (occurrence: CN)
  Receive Date: 20201206
  Receipt Date: 20201206
  Transmission Date: 20210114
  Serious: Yes (Other)
  Sender: FDA-Public Use
  Company Number: CN-BAXTER-2020BAX024667

PATIENT
  Age: 23 Year
  Sex: Male

DRUGS (10)
  1. DAUNORUBICIN [Suspect]
     Active Substance: DAUNORUBICIN
     Indication: ACUTE LEUKAEMIA
     Dosage: VDCP REGIMEN, DAUNORUBICIN + GS (40 ML)
     Route: 042
     Dates: start: 20200905, end: 20200907
  2. ETOPOSIDE. [Suspect]
     Active Substance: ETOPOSIDE
     Indication: ACUTE LEUKAEMIA
     Dosage: IAE REGIMEN, ETOPOSIDE + NS  (500 ML)
     Route: 042
     Dates: start: 20200927, end: 20200927
  3. ENDOXAN [Suspect]
     Active Substance: CYCLOPHOSPHAMIDE
     Indication: ACUTE LEUKAEMIA
     Dosage: VDCP REGIMEN
     Route: 042
     Dates: start: 20200905, end: 20200907
  4. 5% GLUCOSE  INJECTION [Suspect]
     Active Substance: DEXTROSE
     Dosage: IAE REGIMEN, GS + IDARUBICIN (10 MG)
     Route: 041
     Dates: start: 20200927, end: 20200929
  5. VINCRISTINE [Suspect]
     Active Substance: VINCRISTINE
     Indication: ACUTE LEUKAEMIA
     Dosage: VDCP REGIMEN, VINCRISTINE + NS (40 ML)
     Route: 065
     Dates: start: 20200905
  6. CYTARABINE. [Suspect]
     Active Substance: CYTARABINE
     Indication: ACUTE LEUKAEMIA
     Dosage: IAE REGIMEN
     Route: 041
     Dates: start: 20200927, end: 20201127
  7. IDARUBICIN [Suspect]
     Active Substance: IDARUBICIN
     Indication: ACUTE LEUKAEMIA
     Dosage: IAE REGIMEN, IDARUBICIN + GS (40 ML)
     Route: 041
     Dates: start: 20200927, end: 20200929
  8. 5% GLUCOSE  INJECTION [Suspect]
     Active Substance: DEXTROSE
     Indication: MEDICATION DILUTION
     Dosage: VDCP REGIMEN, GS + DAUNORUBICIN (60 MG)
     Route: 042
     Dates: start: 20200905, end: 20200907
  9. 0.9% SODIUM CHLORIDE INJECTION [Suspect]
     Active Substance: SODIUM CHLORIDE
     Indication: MEDICATION DILUTION
     Dosage: VDCP REGIMEN, NS + VINCRISTINE (2 G)
     Route: 065
     Dates: start: 20200905
  10. 0.9% SODIUM CHLORIDE INJECTION [Suspect]
     Active Substance: SODIUM CHLORIDE
     Dosage: IAE REGIMEN, NS + ETOPOSIDE (100 MG)
     Route: 042
     Dates: start: 20200927, end: 20200927

REACTIONS (2)
  - Agranulocytosis [Unknown]
  - Myelosuppression [Unknown]

NARRATIVE: CASE EVENT DATE: 20201025
